FAERS Safety Report 6265935-6 (Version None)
Quarter: 2009Q3

REPORT INFORMATION
  Report Type: 
  Country: None (occurrence: None)
  Receive Date: 20090709
  Receipt Date: 20090709
  Transmission Date: 20100115
  Serious: Yes (Hospitalization)
  Sender: FDA-Public Use
  Company Number: None

PATIENT
  Age: 50 Year
  Sex: Female
  Weight: 80 kg

DRUGS (9)
  1. DOCETAXEL [Suspect]
     Indication: BREAST CANCER
     Dosage: 75MG/M2 EVERY 3 WEEKS/4 CY IV
     Route: 042
     Dates: start: 20090327, end: 20090529
  2. CYCLOPHOSPHAMIDE [Suspect]
     Dosage: 600MG/M2 EVERY 3 WEEKS/4 CY IV
     Route: 042
     Dates: start: 20090327, end: 20090529
  3. BENICAR [Concomitant]
  4. SIMVASTATIN [Concomitant]
  5. METFORMIN HCL [Concomitant]
  6. ASPIRIN [Concomitant]
  7. ATIVAN [Concomitant]
  8. PROCHLORPERAZINE [Concomitant]
  9. POLYMYXIN B SULFATE [Concomitant]

REACTIONS (1)
  - HAEMODYNAMIC INSTABILITY [None]
